FAERS Safety Report 8161145-6 (Version None)
Quarter: 2012Q1

REPORT INFORMATION
  Report Type: 
  Country: None (occurrence: None)
  Receive Date: 20120224
  Receipt Date: 20120220
  Transmission Date: 20120608
  Serious: Yes (Other)
  Sender: FDA-Public Use
  Company Number: US-PFIZER INC-2012045540

PATIENT
  Sex: Female
  Weight: 82 kg

DRUGS (6)
  1. WELLBUTRIN XL [Suspect]
     Indication: MENTAL DISORDER
  2. PRISTIQ [Suspect]
     Indication: DEPRESSION
     Dosage: 50 MG, DAILY
     Dates: start: 20111101, end: 20120201
  3. WELLBUTRIN XL [Suspect]
     Indication: DEPRESSION
     Dosage: 300 MG, DAILY
  4. WELLBUTRIN XL [Suspect]
     Indication: ATTENTION DEFICIT/HYPERACTIVITY DISORDER
  5. LISINOPRIL [Concomitant]
     Indication: HYPERTENSION
     Dosage: 5 MG, DAILY
  6. CLONIDINE HYDROCHLORIDE [Concomitant]
     Indication: HYPERTENSION
     Dosage: 0.2 MG, 2X/DAY

REACTIONS (2)
  - DEPRESSION [None]
  - HEADACHE [None]
